FAERS Safety Report 18998548 (Version 2)
Quarter: 2021Q1

REPORT INFORMATION
  Report Type: Report from Study
  Country: ES (occurrence: ES)
  Receive Date: 20210311
  Receipt Date: 20210324
  Transmission Date: 20210420
  Serious: Yes (Death, Hospitalization)
  Sender: FDA-Public Use
  Company Number: ES-EISAI MEDICAL RESEARCH-EC-2021-089189

PATIENT
  Age: 74 Year
  Sex: Male
  Weight: 80 kg

DRUGS (21)
  1. FOLIC ACID. [Concomitant]
     Active Substance: FOLIC ACID
     Dates: start: 20200617
  2. OPTOVIT [Concomitant]
     Route: 058
     Dates: start: 20200617
  3. PEMBROLIZUMAB. [Suspect]
     Active Substance: PEMBROLIZUMAB
     Route: 041
     Dates: start: 20201228, end: 20201228
  4. ASPIRIN. [Concomitant]
     Active Substance: ASPIRIN
     Dates: start: 20100105, end: 20210124
  5. CANDESARTAN. [Concomitant]
     Active Substance: CANDESARTAN
     Dates: start: 20190717
  6. NITROGLYCERIN. [Concomitant]
     Active Substance: NITROGLYCERIN
     Dates: start: 20110627
  7. PEMETREXED. [Suspect]
     Active Substance: PEMETREXED
     Route: 042
     Dates: start: 20201126, end: 20201126
  8. GLICLAZIDE MR [Concomitant]
     Active Substance: GLICLAZIDE
     Dates: start: 20110223
  9. PANCREATIN [Concomitant]
     Active Substance: PANCRELIPASE
     Dates: start: 20190422
  10. OPTOVIT [Concomitant]
     Dates: start: 20200617
  11. BISOPROLOL [Concomitant]
     Active Substance: BISOPROLOL
     Dates: start: 20110526
  12. OMEPRAZOLE. [Concomitant]
     Active Substance: OMEPRAZOLE
     Dates: start: 20170630
  13. CODEINE [Concomitant]
     Active Substance: CODEINE
     Dates: start: 20200525
  14. LENVATINIB [Suspect]
     Active Substance: LENVATINIB
     Indication: NON-SMALL CELL LUNG CANCER METASTATIC
     Route: 048
     Dates: start: 20200630, end: 20210124
  15. PEMBROLIZUMAB. [Suspect]
     Active Substance: PEMBROLIZUMAB
     Indication: NON-SMALL CELL LUNG CANCER METASTATIC
     Route: 041
     Dates: start: 20200630, end: 20201126
  16. ACETAMINOPHEN. [Concomitant]
     Active Substance: ACETAMINOPHEN
     Dates: start: 20200525
  17. PEMETREXED. [Suspect]
     Active Substance: PEMETREXED
     Indication: NON-SMALL CELL LUNG CANCER METASTATIC
     Route: 042
     Dates: start: 20200630, end: 20201104
  18. CARBOPLATIN. [Concomitant]
     Active Substance: CARBOPLATIN
     Dates: start: 20200630, end: 20200901
  19. LORMETAZEPAM [Concomitant]
     Active Substance: LORMETAZEPAM
     Dates: start: 20200513
  20. SIMVASTATIN. [Concomitant]
     Active Substance: SIMVASTATIN
     Dates: start: 20120704
  21. TRAZODONE HYDROCHLORIDE. [Concomitant]
     Active Substance: TRAZODONE HYDROCHLORIDE
     Dates: start: 20200605

REACTIONS (1)
  - Acute coronary syndrome [Recovered/Resolved]

NARRATIVE: CASE EVENT DATE: 20210125
